FAERS Safety Report 9783814 (Version 1)
Quarter: 2013Q4

REPORT INFORMATION
  Report Type: Spontaneous
  Country: US (occurrence: US)
  Receive Date: 20131226
  Receipt Date: 20131226
  Transmission Date: 20140711
  Serious: No
  Sender: FDA-Public Use
  Company Number: US-PFIZER INC-2013366288

PATIENT
  Age: 61 Year
  Sex: Male
  Weight: 100 kg

DRUGS (5)
  1. VIAGRA [Suspect]
     Indication: SEXUAL DYSFUNCTION
     Dosage: 100 MG, AS NEEDED
     Route: 048
     Dates: start: 2000
  2. VIAGRA [Suspect]
     Dosage: UNK (QUARTER OF 100MG TABLET), AS NEEDED
     Route: 048
  3. VIAGRA [Suspect]
     Dosage: UNK (QUARTER OF 50MG TABLET), AS NEEDED
     Route: 048
  4. COREG [Concomitant]
     Indication: HYPERTENSION
     Dosage: 20 MG, DAILY
  5. ASPIRIN [Concomitant]
     Indication: CEREBROVASCULAR ACCIDENT PROPHYLAXIS
     Dosage: 150 MG, DAILY

REACTIONS (2)
  - Drug ineffective [Unknown]
  - Product taste abnormal [Unknown]
